FAERS Safety Report 9045660 (Version 1)
Quarter: 2013Q1

REPORT INFORMATION
  Report Type: Report from Study
  Country: US (occurrence: US)
  Receive Date: 20130131
  Receipt Date: 20130131
  Transmission Date: 20140127
  Serious: No
  Sender: FDA-Public Use
  Company Number: US-ABBOTT-12P-163-1015336-00

PATIENT
  Sex: Female
  Weight: 54.48 kg

DRUGS (10)
  1. HUMIRA [Suspect]
     Indication: RHEUMATOID ARTHRITIS
     Dates: start: 20110511, end: 201209
  2. ATENOLOL [Concomitant]
     Indication: RHEUMATOID ARTHRITIS
  3. CARDURA [Concomitant]
     Indication: HYPERTENSION
  4. DIOVAN [Concomitant]
     Indication: HYPERTENSION
  5. HCTZ [Concomitant]
     Indication: FLUID RETENTION
  6. LEVOTHYROXINE [Concomitant]
     Indication: THYROID DISORDER
  7. NEURONTIN [Concomitant]
     Indication: PAIN
  8. PREDNISONE [Concomitant]
     Indication: RHEUMATOID ARTHRITIS
  9. TIMOLOL [Concomitant]
     Indication: GLAUCOMA
  10. VITAMIN D [Concomitant]
     Indication: VITAMIN SUPPLEMENTATION

REACTIONS (1)
  - Herpes zoster [Recovered/Resolved]
